FAERS Safety Report 11927212 (Version 3)
Quarter: 2016Q2

REPORT INFORMATION
  Report Type: Report from Study
  Country: US (occurrence: US)
  Receive Date: 20160119
  Receipt Date: 20160523
  Transmission Date: 20160815
  Serious: Yes (Other)
  Sender: FDA-Public Use
  Company Number: US-SA-2015SA190677

PATIENT
  Age: 54 Year
  Sex: Male

DRUGS (3)
  1. LEMTRADA [Suspect]
     Active Substance: ALEMTUZUMAB
     Indication: MULTIPLE SCLEROSIS
     Route: 041
     Dates: start: 20151103, end: 20151103
  2. PREDNISONE. [Suspect]
     Active Substance: PREDNISONE
     Indication: MULTIPLE SCLEROSIS RELAPSE
     Route: 048
     Dates: start: 201605
  3. LEMTRADA [Suspect]
     Active Substance: ALEMTUZUMAB
     Indication: MULTIPLE SCLEROSIS
     Route: 041
     Dates: start: 20151029, end: 20151101

REACTIONS (7)
  - Asthenia [Unknown]
  - Fatigue [Not Recovered/Not Resolved]
  - Nephrolithiasis [Recovered/Resolved]
  - Headache [Not Recovered/Not Resolved]
  - Adverse event [Unknown]
  - Muscle spasticity [Recovering/Resolving]
  - Multiple sclerosis relapse [Recovering/Resolving]

NARRATIVE: CASE EVENT DATE: 2015
